FAERS Safety Report 7277125-9 (Version None)
Quarter: 2011Q1

REPORT INFORMATION
  Report Type: 
  Country: None (occurrence: None)
  Receive Date: 20110202
  Receipt Date: 20110202
  Transmission Date: 20110831
  Serious: No
  Sender: FDA-Public Use
  Company Number: None

PATIENT
  Sex: Male
  Weight: 92.9874 kg

DRUGS (1)
  1. CARAFATE [Suspect]
     Indication: COLITIS ULCERATIVE
     Dosage: 1 GRAM QID PO
     Route: 048
     Dates: start: 20050425

REACTIONS (2)
  - GASTROINTESTINAL DISORDER [None]
  - DRUG INTOLERANCE [None]
